FAERS Safety Report 5565061-5 (Version None)
Quarter: 2007Q4

REPORT INFORMATION
  Report Type: 
  Country: None (occurrence: None)
  Receive Date: 20071212
  Receipt Date: 20071130
  Transmission Date: 20080405
  Serious: Yes (Hospitalization)
  Sender: FDA-Public Use
  Company Number: MEDI-0006231

PATIENT
  Age: 76 Year
  Sex: Male
  Weight: 94.7111 kg

DRUGS (11)
  1. ETHYOL [Suspect]
     Indication: RADIOTHERAPY
     Dosage: 500 MG, 1 IN 1 D, SUBCUTANEOUS
     Route: 058
     Dates: start: 20071015, end: 20071029
  2. RADIATION THERAPY [Concomitant]
  3. CARBOPLATIN [Concomitant]
  4. TAXOL [Concomitant]
  5. FLOMAX (MORNIFLUMATE) [Concomitant]
  6. VASOTEC [Concomitant]
  7. PROSCAR [Concomitant]
  8. METOPROLOL TARTRATE [Concomitant]
  9. PROTONIX [Concomitant]
  10. TRAZODONE HCL [Concomitant]
  11. ARICEPT [Concomitant]

REACTIONS (5)
  - FEBRILE NEUTROPENIA [None]
  - NO THERAPEUTIC RESPONSE [None]
  - PLATELET COUNT DECREASED [None]
  - PNEUMONIA [None]
  - WHITE BLOOD CELL COUNT DECREASED [None]
